FAERS Safety Report 8041532-7 (Version None)
Quarter: 2012Q1

REPORT INFORMATION
  Report Type: 
  Country: None (occurrence: None)
  Receive Date: 20120112
  Receipt Date: 20120103
  Transmission Date: 20120608
  Serious: Yes (Hospitalization)
  Sender: FDA-Public Use
  Company Number: US-BAYER-2011-054869

PATIENT
  Age: 19 Year
  Sex: Female
  Weight: 66 kg

DRUGS (6)
  1. YAZ [Suspect]
     Indication: ACNE
  2. PREVACID [Concomitant]
     Dosage: 15 MG, BID
     Route: 048
  3. YAZ [Suspect]
     Indication: PREMENSTRUAL SYNDROME
  4. SYNTHROID [Concomitant]
     Dosage: 50 ?G, QD
     Route: 048
  5. YAZ [Suspect]
     Indication: CONTRACEPTION
     Dosage: UNK
     Dates: start: 20090601, end: 20091201
  6. LOESTRIN FE 1/20 [Concomitant]
     Dosage: 1 DF, QD

REACTIONS (7)
  - INJURY [None]
  - ANXIETY [None]
  - MENTAL DISORDER [None]
  - ANHEDONIA [None]
  - CHOLECYSTITIS CHRONIC [None]
  - GALLBLADDER DISORDER [None]
  - PAIN [None]
